FAERS Safety Report 6262173-8 (Version None)
Quarter: 2009Q3

REPORT INFORMATION
  Report Type: 
  Country: None (occurrence: None)
  Receive Date: 20090708
  Receipt Date: 20090708
  Transmission Date: 20100115
  Serious: Yes (Life-Threatening, Hospitalization, Other)
  Sender: FDA-Public Use
  Company Number: None

PATIENT
  Sex: Male
  Weight: 154.223 kg

DRUGS (1)
  1. DIGOXIN [Suspect]
     Indication: CARDIAC DISORDER
     Dosage: 0.125 MG 1 DAILY
     Dates: start: 20080601

REACTIONS (3)
  - ARTERIAL OCCLUSIVE DISEASE [None]
  - HEART VALVE INCOMPETENCE [None]
  - UNEVALUABLE EVENT [None]
